FAERS Safety Report 23486706 (Version 1)
Quarter: 2024Q1

REPORT INFORMATION
  Report Type: Spontaneous
  Country: US (occurrence: None)
  Receive Date: 20240205
  Receipt Date: 20240205
  Transmission Date: 20240410
  Serious: Yes (Other)
  Sender: FDA-Public Use
  Company Number: None

PATIENT
  Age: 73 Year
  Sex: Male
  Weight: 94.05 kg

DRUGS (16)
  1. FINASTERIDE [Suspect]
     Active Substance: FINASTERIDE
     Indication: Prostatomegaly
     Dosage: FREQUENCY : DAILY;?
     Route: 048
     Dates: start: 20170102, end: 20240205
  2. VICTOZA [Suspect]
     Active Substance: LIRAGLUTIDE
     Indication: Glycosylated haemoglobin increased
     Dosage: OTHER FREQUENCY : ONCE A WEEK;?
     Route: 058
     Dates: start: 20170301, end: 20170501
  3. LANTUS [Concomitant]
     Active Substance: INSULIN GLARGINE
  4. TRELEGY ELLIPTA [Concomitant]
     Active Substance: FLUTICASONE FUROATE\UMECLIDINIUM BROMIDE\VILANTEROL TRIFENATATE
  5. ALBUTEROL [Concomitant]
     Active Substance: ALBUTEROL
  6. ENALAPRIL [Concomitant]
     Active Substance: ENALAPRIL
  7. CITALOPRAM [Concomitant]
     Active Substance: CITALOPRAM HYDROBROMIDE
  8. Farmiga [Concomitant]
  9. metropolis [Concomitant]
  10. TADALAFIL [Concomitant]
     Active Substance: TADALAFIL
  11. PRAVASTATIN [Concomitant]
     Active Substance: PRAVASTATIN
  12. clopidogril [Concomitant]
  13. TRELEGY ELLIPTA [Concomitant]
     Active Substance: FLUTICASONE FUROATE\UMECLIDINIUM BROMIDE\VILANTEROL TRIFENATATE
  14. albuteral sulfate [Concomitant]
  15. C? q 10 [Concomitant]
  16. men^s multivitamin [Concomitant]

REACTIONS (7)
  - Ejaculation disorder [None]
  - Anxiety [None]
  - Sleep deficit [None]
  - Suicidal ideation [None]
  - Suicide attempt [None]
  - Anger [None]
  - Cerebrovascular accident [None]

NARRATIVE: CASE EVENT DATE: 20191101
